FAERS Safety Report 4367053-0 (Version None)
Quarter: 2004Q2

REPORT INFORMATION
  Report Type: 
  Country: None (occurrence: None)
  Receive Date: 20040528
  Receipt Date: 20040524
  Transmission Date: 20050107
  Serious: Yes (Hospitalization)
  Sender: FDA-Public Use
  Company Number: US-JNJFOC-20040505716

PATIENT
  Age: 81 Year
  Sex: Male
  Weight: 86.18 kg

DRUGS (10)
  1. ULTRAM [Suspect]
     Indication: BACK PAIN
     Route: 049
  2. CENTROID [Concomitant]
  3. CENTROID [Concomitant]
  4. PREVACID [Concomitant]
  5. FLORINEF [Concomitant]
  6. PROAMATINE [Concomitant]
  7. FLOMAX [Concomitant]
  8. AEROCYT [Concomitant]
  9. ALBUTEROL [Concomitant]
  10. LASIX [Concomitant]

REACTIONS (2)
  - FLUID OVERLOAD [None]
  - PULMONARY OEDEMA [None]
